FAERS Safety Report 23554051 (Version 1)
Quarter: 2024Q1

REPORT INFORMATION
  Report Type: Spontaneous
  Country: US (occurrence: None)
  Receive Date: 20240222
  Receipt Date: 20240222
  Transmission Date: 20240410
  Serious: Yes (Other)
  Sender: FDA-Public Use
  Company Number: None

PATIENT
  Age: 32 Year
  Sex: Female
  Weight: 72 kg

DRUGS (12)
  1. BUPROPION HYDROCHLORIDE SR [Suspect]
     Active Substance: BUPROPION HYDROCHLORIDE
     Indication: Depression
     Dosage: OTHER QUANTITY : 1 TABLET(S);?FREQUENCY : DAILY;?
     Route: 048
     Dates: start: 20240209, end: 20240219
  2. ZOLPIDEM [Concomitant]
     Active Substance: ZOLPIDEM TARTRATE
  3. SPRAVATO [Concomitant]
     Active Substance: ESKETAMINE
  4. Tollovid [Concomitant]
  5. ITIS [Concomitant]
  6. Arterosil [Concomitant]
  7. Mitocore [Concomitant]
  8. Omega3 fish oil [Concomitant]
  9. QUERCETIN [Concomitant]
     Active Substance: QUERCETIN
  10. oq10 [Concomitant]
  11. MAGNESIUM GLYCINATE [Concomitant]
     Active Substance: MAGNESIUM GLYCINATE
  12. 5-htp [Concomitant]

REACTIONS (4)
  - Chest discomfort [None]
  - Chest pain [None]
  - Feeling abnormal [None]
  - Cardiovascular disorder [None]

NARRATIVE: CASE EVENT DATE: 20240218
